FAERS Safety Report 12566772 (Version 1)
Quarter: 2016Q3

REPORT INFORMATION
  Report Type: Spontaneous
  Country: US (occurrence: US)
  Receive Date: 20160718
  Receipt Date: 20160718
  Transmission Date: 20161109
  Serious: Yes (Hospitalization)
  Sender: FDA-Public Use
  Company Number: US-SMITH AND NEPHEW, INC-2016SMT00571

PATIENT
  Age: 57 Year
  Sex: Female
  Weight: 126.98 kg

DRUGS (7)
  1. METFORMIN [Concomitant]
     Active Substance: METFORMIN HYDROCHLORIDE
  2. XALATAN [Concomitant]
     Active Substance: LATANOPROST
  3. REGRANEX [Suspect]
     Active Substance: BECAPLERMIN
     Indication: DIABETIC FOOT
     Dosage: UNK, EVERY 12 HOURS
     Route: 061
     Dates: start: 20160702
  4. LOSARTAN. [Concomitant]
     Active Substance: LOSARTAN
  5. CLARITIN [Concomitant]
     Active Substance: LORATADINE
  6. APIDRA [Concomitant]
     Active Substance: INSULIN GLULISINE
  7. LANTUS [Concomitant]
     Active Substance: INSULIN GLARGINE
     Dosage: UNK, 1X/DAY AT BEDTIME

REACTIONS (4)
  - Application site pain [Unknown]
  - Skin operation [Unknown]
  - Inappropriate schedule of drug administration [Unknown]
  - Medication residue present [Unknown]

NARRATIVE: CASE EVENT DATE: 201607
